FAERS Safety Report 11378370 (Version 1)
Quarter: 2015Q3

REPORT INFORMATION
  Report Type: Spontaneous
  Country: US (occurrence: US)
  Receive Date: 20150811
  Receipt Date: 20150811
  Transmission Date: 20151125
  Serious: No
  Sender: FDA-Public Use
  Company Number: US-ELI_LILLY_AND_COMPANY-US201301008854

PATIENT
  Sex: Female

DRUGS (2)
  1. LETAIRIS [Concomitant]
     Active Substance: AMBRISENTAN
     Indication: SYSTEMIC SCLEROSIS
     Dosage: 10 MG, QD
     Route: 048
     Dates: start: 20120530
  2. ADCIRCA [Suspect]
     Active Substance: TADALAFIL

REACTIONS (2)
  - Localised infection [Unknown]
  - Calcinosis [Unknown]
